FAERS Safety Report 17135206 (Version 1)
Quarter: 2019Q4

REPORT INFORMATION
  Report Type: Spontaneous
  Country: MY (occurrence: MY)
  Receive Date: 20191210
  Receipt Date: 20191210
  Transmission Date: 20200122
  Serious: Yes (Other)
  Sender: FDA-Public Use
  Company Number: NVSC2019MY061155

PATIENT
  Age: 43 Year
  Sex: Male

DRUGS (1)
  1. CURAM FILM-COATED TABLET 625 MG [Suspect]
     Active Substance: AMOXICILLIN\CLAVULANATE POTASSIUM
     Indication: SWELLING
     Dosage: 625 MG, Q12H
     Route: 048

REACTIONS (3)
  - Sensation of foreign body [Recovered/Resolved]
  - Pruritus [Recovered/Resolved]
  - Dyspnoea [Recovering/Resolving]
